FAERS Safety Report 21026415 (Version 1)
Quarter: 2022Q2

REPORT INFORMATION
  Report Type: Spontaneous
  Country: US (occurrence: None)
  Receive Date: 20220629
  Receipt Date: 20220629
  Transmission Date: 20220721
  Serious: No
  Sender: FDA-Public Use
  Company Number: None

PATIENT
  Sex: Female

DRUGS (1)
  1. OTEZLA [Suspect]
     Active Substance: APREMILAST
     Indication: Psoriatic arthropathy
     Dosage: 30MG TWICE DAILY ORAL
     Route: 048
     Dates: start: 20210925

REACTIONS (4)
  - Erythema [None]
  - Pruritus [None]
  - Skin burning sensation [None]
  - Therapy non-responder [None]
